FAERS Safety Report 12437399 (Version 2)
Quarter: 2016Q2

REPORT INFORMATION
  Report Type: Spontaneous
  Country: NZ (occurrence: NZ)
  Receive Date: 20160606
  Receipt Date: 20160621
  Transmission Date: 20160815
  Serious: Yes (Hospitalization, Other)
  Sender: FDA-Public Use
  Company Number: NZ-ACTAVIS-2016-11518

PATIENT
  Age: 55 Year
  Sex: Female

DRUGS (2)
  1. CITALOPRAM [Suspect]
     Active Substance: CITALOPRAM HYDROBROMIDE
     Indication: INTENTIONAL OVERDOSE
     Dosage: 2460 MG, TOTAL
     Route: 065
  2. LEVOTHYROXINE (UNKNOWN) [Suspect]
     Active Substance: LEVOTHYROXINE
     Indication: INTENTIONAL OVERDOSE
     Dosage: 15800 ?G, TOTAL
     Route: 065

REACTIONS (3)
  - Seizure [Recovered/Resolved]
  - Hyperthyroidism [Recovered/Resolved]
  - Intentional overdose [Recovered/Resolved]
